FAERS Safety Report 22304368 (Version 1)
Quarter: 2023Q2

REPORT INFORMATION
  Report Type: Spontaneous
  Country: US (occurrence: None)
  Receive Date: 20230509
  Receipt Date: 20230509
  Transmission Date: 20230722
  Serious: No
  Sender: FDA-Public Use
  Company Number: None

PATIENT
  Age: 70 Year
  Sex: Female
  Weight: 49.44 kg

DRUGS (12)
  1. INLYTA [Suspect]
     Active Substance: AXITINIB
     Indication: Renal cancer
     Dosage: FREQUENCY : TWICE A DAY;?
     Route: 048
     Dates: start: 20230121
  2. AMLODIPINE [Concomitant]
  3. BONE RESTORE PLUS VITAMIN K [Concomitant]
  4. CLONNINE [Concomitant]
  5. FISH OIL [Concomitant]
     Active Substance: FISH OIL
  6. LEVOTHYROXINE [Concomitant]
  7. LISINOPRIL [Concomitant]
  8. MAGNESIUM [Concomitant]
  9. MONUPIRAVIR [Concomitant]
  10. MULTIVITAMIN [Concomitant]
  11. SILACE [Concomitant]
     Active Substance: DOCUSATE SODIUM
  12. ZINC [Concomitant]
     Active Substance: ZINC

REACTIONS (2)
  - Feeling abnormal [None]
  - Extra dose administered [None]

NARRATIVE: CASE EVENT DATE: 20230509
